FAERS Safety Report 9394536 (Version 1)
Quarter: 2013Q3

REPORT INFORMATION
  Report Type: Report from Study
  Country: AR (occurrence: AR)
  Receive Date: 20130711
  Receipt Date: 20130711
  Transmission Date: 20140515
  Serious: Yes (Other)
  Sender: FDA-Public Use
  Company Number: PHHY2013AR072913

PATIENT
  Sex: Male

DRUGS (2)
  1. RASILEZ [Suspect]
     Indication: HYPERTENSION
     Dosage: 1 DF (300MG ALIS), DAILY
     Route: 048
  2. EXFORGE [Suspect]
     Indication: HYPERTENSION
     Dosage: 1 DF (160MG VALS/ 5MG AMLO), DAILY
     Route: 048

REACTIONS (5)
  - Lichen planus [Unknown]
  - Pigmentation disorder [Recovered/Resolved]
  - Erythema [Unknown]
  - Stress [Recovered/Resolved]
  - Blood glucose increased [Recovering/Resolving]
